FAERS Safety Report 19935899 (Version 1)
Quarter: 2021Q4

REPORT INFORMATION
  Report Type: Spontaneous
  Country: NL (occurrence: NL)
  Receive Date: 20211008
  Receipt Date: 20211008
  Transmission Date: 20220304
  Serious: Yes (Death, Hospitalization, Other)
  Sender: FDA-Public Use
  Company Number: NL-NOVARTISPH-PHBS1987NL01580

PATIENT
  Age: 10 Year
  Sex: Female

DRUGS (10)
  1. RIFAMPIN [Suspect]
     Active Substance: RIFAMPIN
     Indication: Tuberculosis of peripheral lymph nodes
     Dosage: 10 MG/KG, UNKNOWN
     Route: 065
  2. RIFAMPIN [Suspect]
     Active Substance: RIFAMPIN
     Indication: Tuberculosis
     Dosage: 15 MG/KG, QD
     Route: 065
     Dates: start: 1984
  3. RIFAMPIN [Suspect]
     Active Substance: RIFAMPIN
     Dosage: LOW AND SLOWLY INCREASED DOSAGE
     Route: 065
     Dates: start: 1984
  4. RIFAMPIN [Suspect]
     Active Substance: RIFAMPIN
     Dosage: 10 MG/KG, QD
     Route: 065
     Dates: start: 1984
  5. PYRAZINAMIDE [Suspect]
     Active Substance: PYRAZINAMIDE
     Indication: Tuberculosis
     Dosage: STARTED AT LOW DOSE AND INCREASED TO 35 MG/KG PER DAY
     Route: 048
  6. PYRAZINAMIDE [Suspect]
     Active Substance: PYRAZINAMIDE
     Dosage: INCREASED TO 35 MG/KG PER DAY
     Route: 048
     Dates: start: 1984
  7. ISONIAZID [Suspect]
     Active Substance: ISONIAZID
     Indication: Tuberculosis
     Dosage: 10 MG/KG, QD
     Route: 065
     Dates: start: 1984
  8. ETHAMBUTOL [Suspect]
     Active Substance: ETHAMBUTOL HYDROCHLORIDE
     Indication: Tuberculosis
     Dosage: UNK
     Route: 065
     Dates: start: 1984
  9. ETHAMBUTOL [Suspect]
     Active Substance: ETHAMBUTOL HYDROCHLORIDE
     Dosage: 15 MG/KG, QD
     Route: 065
     Dates: start: 1984
  10. KANAMYCIN [Concomitant]
     Active Substance: KANAMYCIN A SULFATE
     Indication: Tuberculosis
     Dosage: 15 MG/KG, QD
     Route: 030
     Dates: start: 1984

REACTIONS (15)
  - Dermatitis [Fatal]
  - Hepatitis fulminant [Fatal]
  - Abdominal pain [Fatal]
  - Eosinophilia [Fatal]
  - Gastrointestinal disorder [Fatal]
  - Headache [Fatal]
  - Coma hepatic [Fatal]
  - Respiratory failure [Fatal]
  - Hepatic enzyme increased [Fatal]
  - Shock [Fatal]
  - Erythema [Fatal]
  - Pruritus [Fatal]
  - Upper respiratory tract infection [Unknown]
  - Pyrexia [Unknown]
  - Influenza [Unknown]

NARRATIVE: CASE EVENT DATE: 19840101
